FAERS Safety Report 22284967 (Version 1)
Quarter: 2023Q2

REPORT INFORMATION
  Report Type: Report from Study
  Country: US (occurrence: None)
  Receive Date: 20230504
  Receipt Date: 20230504
  Transmission Date: 20230721
  Serious: Yes (Hospitalization)
  Sender: FDA-Public Use
  Company Number: US-Eisai Medical Research-EC-2023-139426

PATIENT
  Age: 65 Year
  Sex: Female

DRUGS (3)
  1. LENVIMA [Suspect]
     Active Substance: LENVATINIB
     Indication: Thyroid cancer
     Dosage: UNKNOWN DOSE
     Route: 048
     Dates: start: 20230223, end: 20230301
  2. LENVIMA [Suspect]
     Active Substance: LENVATINIB
     Route: 048
     Dates: start: 20230302, end: 202303
  3. LENVIMA [Suspect]
     Active Substance: LENVATINIB
     Dosage: ALTERNATING DOSING OF 10MG LENVIMA DAILY ONE DAY AND 20MG THE SECOND DAY
     Route: 048
     Dates: start: 202303

REACTIONS (1)
  - Impaired healing [Unknown]

NARRATIVE: CASE EVENT DATE: 20230426
